FAERS Safety Report 9322505 (Version 3)
Quarter: 2014Q1

REPORT INFORMATION
  Report Type: Spontaneous
  Country: NO (occurrence: NO)
  Receive Date: 20130531
  Receipt Date: 20140214
  Transmission Date: 20141002
  Serious: Yes (Hospitalization)
  Sender: FDA-Public Use
  Company Number: NO-PFIZER INC-2013157934

PATIENT
  Age: 67 Year
  Sex: Female

DRUGS (3)
  1. NEURONTIN [Suspect]
     Indication: PAIN IN EXTREMITY
     Dosage: 300 MG, 2 IN THE MORNING, 3 MIDDAY AND 2 IN THE EVENING
     Dates: start: 2012
  2. NEURONTIN [Suspect]
     Dosage: 12 TABLETS PER DAY
  3. PARACET [Concomitant]
     Indication: PAIN IN EXTREMITY
     Dosage: 1 DF, UNK

REACTIONS (2)
  - Pain in extremity [Unknown]
  - Drug ineffective [Not Recovered/Not Resolved]
